FAERS Safety Report 5036247-3 (Version None)
Quarter: 2006Q2

REPORT INFORMATION
  Report Type: 
  Country: None (occurrence: None)
  Receive Date: 20060531
  Receipt Date: 20060418
  Transmission Date: 20061013
  Serious: Yes (Other)
  Sender: FDA-Public Use
  Company Number: PHEH2006US05113

PATIENT
  Age: 22 Year
  Sex: Female

DRUGS (1)
  1. EXJADE [Suspect]
     Indication: BLOOD IRON INCREASED
     Dosage: 875 MG, QD, ORAL
     Route: 048
     Dates: start: 20060404, end: 20060408

REACTIONS (1)
  - BLOOD CREATININE INCREASED [None]
